FAERS Safety Report 6204671-9 (Version None)
Quarter: 2009Q2

REPORT INFORMATION
  Report Type: 
  Country: None (occurrence: None)
  Receive Date: 20090527
  Receipt Date: 20090518
  Transmission Date: 20091009
  Serious: Yes (Hospitalization)
  Sender: FDA-Public Use
  Company Number: PHHY2009FR18939

PATIENT
  Sex: Female

DRUGS (3)
  1. TAREG [Suspect]
     Dosage: 160 MG, QD
     Dates: start: 20090101, end: 20090410
  2. STAGID [Concomitant]
     Dosage: 700 MG, TID
     Dates: start: 20090101
  3. NOVONORM [Concomitant]
     Dosage: 2 MG, TID

REACTIONS (2)
  - PLATELET COUNT INCREASED [None]
  - VASCULAR PURPURA [None]
